FAERS Safety Report 6818851-2 (Version None)
Quarter: 2010Q2

REPORT INFORMATION
  Report Type: 
  Country: None (occurrence: None)
  Receive Date: 20100630
  Receipt Date: 20100623
  Transmission Date: 20101027
  Serious: Yes (Other)
  Sender: FDA-Public Use
  Company Number: 2010SP034718

PATIENT
  Sex: Female

DRUGS (1)
  1. IMPLANON [Suspect]
     Indication: CONTRACEPTION
     Dosage: SBDE
     Dates: start: 20100407, end: 20100607

REACTIONS (3)
  - ANTIBIOTIC RESISTANT STAPHYLOCOCCUS TEST [None]
  - IMPLANT SITE INFECTION [None]
  - PROCEDURAL SITE REACTION [None]
